FAERS Safety Report 12211441 (Version 1)
Quarter: 2016Q1

REPORT INFORMATION
  Report Type: Spontaneous
  Country: US (occurrence: US)
  Receive Date: 20160325
  Receipt Date: 20160325
  Transmission Date: 20160526
  Serious: Yes (Other)
  Sender: FDA-Public Use
  Company Number: US-MDT-ADR-2016-00565

PATIENT
  Age: 59 Year
  Sex: Female

DRUGS (1)
  1. COMPOUNDED BACLOFEN [Suspect]
     Active Substance: BACLOFEN
     Dosage: 750 MCG/DAY
     Route: 037

REACTIONS (5)
  - Muscle spasticity [None]
  - Pruritus [None]
  - Therapeutic response unexpected [None]
  - Drug withdrawal syndrome [None]
  - Dyskinesia [None]
